FAERS Safety Report 19010671 (Version 1)
Quarter: 2021Q1

REPORT INFORMATION
  Report Type: Other
  Country: CA (occurrence: CA)
  Receive Date: 20210315
  Receipt Date: 20210315
  Transmission Date: 20210420
  Serious: Yes (Other)
  Sender: FDA-Public Use
  Company Number: CA-ROCHE-2718859

PATIENT
  Age: 77 Year
  Sex: Male

DRUGS (13)
  1. RISEDRONATE [Suspect]
     Active Substance: RISEDRONATE SODIUM
     Indication: PRODUCT USED FOR UNKNOWN INDICATION
     Route: 065
  2. ESBRIET [Suspect]
     Active Substance: PIRFENIDONE
     Route: 048
     Dates: start: 20200925, end: 20201001
  3. OMEGA 3 [Concomitant]
     Active Substance: OMEGA-3 FATTY ACIDS
  4. VIAGRA [Concomitant]
     Active Substance: SILDENAFIL CITRATE
  5. MAGNESIUM [Concomitant]
     Active Substance: MAGNESIUM
  6. ESBRIET [Suspect]
     Active Substance: PIRFENIDONE
     Route: 048
     Dates: start: 20201231
  7. PREDNISONE. [Concomitant]
     Active Substance: PREDNISONE
  8. FLOMAX [Concomitant]
     Active Substance: TAMSULOSIN HYDROCHLORIDE
  9. ESBRIET [Suspect]
     Active Substance: PIRFENIDONE
     Indication: IDIOPATHIC PULMONARY FIBROSIS
     Route: 048
     Dates: start: 20200918, end: 20200924
  10. ESBRIET [Suspect]
     Active Substance: PIRFENIDONE
     Dosage: 801 MG ? 801 MG ? 534 MG
     Route: 048
     Dates: start: 2020, end: 2020
  11. SULFATRIM [Concomitant]
     Active Substance: SULFAMETHOXAZOLE\TRIMETHOPRIM
  12. ESBRIET [Suspect]
     Active Substance: PIRFENIDONE
     Route: 048
     Dates: start: 20201002, end: 2020
  13. ALTACE [Concomitant]
     Active Substance: RAMIPRIL

REACTIONS (6)
  - Dyspnoea [Not Recovered/Not Resolved]
  - Pain [Recovering/Resolving]
  - Chronic sinusitis [Unknown]
  - Pulmonary artery aneurysm [Unknown]
  - Headache [Recovered/Resolved]
  - Poor quality sleep [Recovering/Resolving]

NARRATIVE: CASE EVENT DATE: 202011
